FAERS Safety Report 5912447-2 (Version None)
Quarter: 2008Q4

REPORT INFORMATION
  Report Type: 
  Country: None (occurrence: None)
  Receive Date: 20081007
  Receipt Date: 20081007
  Transmission Date: 20090506
  Serious: Yes (Life-Threatening, Hospitalization)
  Sender: FDA-Public Use
  Company Number: None

PATIENT
  Age: 51 Year
  Weight: 107 kg

DRUGS (12)
  1. IOPAMIDOL [Suspect]
     Indication: SCAN WITH CONTRAST
     Dosage: 70 ML ONCE IV BOLUS
     Route: 040
     Dates: start: 20080820, end: 20080820
  2. ASPIRIN [Concomitant]
  3. CYPROHEPTADINE HCL [Concomitant]
  4. DEPAKOTE [Concomitant]
  5. GEMFIBROZIL [Concomitant]
  6. ESCITALOPRAM [Concomitant]
  7. LISINOPRIL [Concomitant]
  8. METOPROLOL TARTRATE [Concomitant]
  9. NITROGLYCERIN [Concomitant]
  10. OMEPRAZOLE [Concomitant]
  11. QUETIAPINE FUMARATE [Concomitant]
  12. SIMVASTATIN [Concomitant]

REACTIONS (2)
  - ANAPHYLACTIC REACTION [None]
  - RESPIRATORY DISTRESS [None]
